FAERS Safety Report 4623129-1 (Version None)
Quarter: 2005Q1

REPORT INFORMATION
  Report Type: 
  Country: None (occurrence: None)
  Receive Date: 20050328
  Receipt Date: 20050328
  Transmission Date: 20050727
  Serious: Yes (Other)
  Sender: FDA-Public Use
  Company Number: None

PATIENT
  Sex: Female
  Weight: 93.8946 kg

DRUGS (1)
  1. AZITHROMYCIN [Suspect]
     Dosage: 500MG DAILY
     Dates: start: 20050324, end: 20050325

REACTIONS (4)
  - BURNING SENSATION [None]
  - FEELING HOT [None]
  - HEADACHE [None]
  - NAUSEA [None]
